FAERS Safety Report 9433207 (Version 1)
Quarter: 2013Q3

REPORT INFORMATION
  Report Type: Spontaneous
  Country: JP (occurrence: JP)
  Receive Date: 20130731
  Receipt Date: 20130731
  Transmission Date: 20140515
  Serious: Yes (Other)
  Sender: FDA-Public Use
  Company Number: PHHY2013JP079770

PATIENT
  Sex: Male

DRUGS (2)
  1. 5-FLUOROURACIL [Suspect]
  2. CISPLATIN [Suspect]

REACTIONS (1)
  - Hepatitis B [Recovered/Resolved]
